FAERS Safety Report 22599737 (Version 3)
Quarter: 2023Q2

REPORT INFORMATION
  Report Type: Report from Study
  Country: MX (occurrence: MX)
  Receive Date: 20230614
  Receipt Date: 20230623
  Transmission Date: 20230721
  Serious: Yes (Death, Other)
  Sender: FDA-Public Use
  Company Number: MX-002147023-NVSC2023MX030425

PATIENT
  Age: 38 Year
  Sex: Female
  Weight: 58 kg

DRUGS (4)
  1. KISQALI [Suspect]
     Active Substance: RIBOCICLIB
     Indication: Neoplasm malignant
     Dosage: 3 DOSAGE FORM, QD
     Route: 048
     Dates: start: 202210
  2. KISQALI [Suspect]
     Active Substance: RIBOCICLIB
     Indication: Breast cancer metastatic
     Dosage: 3 DOSAGE FORM, QD
     Route: 048
     Dates: start: 202210, end: 202302
  3. FEMARA [Suspect]
     Active Substance: LETROZOLE
     Indication: Neoplasm malignant
     Dosage: 1 DOSAGE FORM, QD (FORMULATION: PILL)
     Route: 048
     Dates: start: 202210, end: 202305
  4. FEMARA [Suspect]
     Active Substance: LETROZOLE
     Indication: Breast cancer

REACTIONS (7)
  - Breast cancer [Fatal]
  - Breast cancer metastatic [Unknown]
  - Malignant neoplasm progression [Unknown]
  - Hepatomegaly [Unknown]
  - Eating disorder [Unknown]
  - Fluid retention [Unknown]
  - Dry skin [Unknown]

NARRATIVE: CASE EVENT DATE: 20221101
